FAERS Safety Report 20347055 (Version 4)
Quarter: 2025Q4

REPORT INFORMATION
  Report Type: Report from Study
  Country: US (occurrence: US)
  Receive Date: 20220118
  Receipt Date: 20251229
  Transmission Date: 20260117
  Serious: Yes (Other)
  Sender: PFIZER
  Company Number: US-PFIZER INC-2021619004

PATIENT
  Age: 46 Year
  Sex: Male
  Weight: 89.342 kg

DRUGS (11)
  1. INLYTA [Suspect]
     Active Substance: AXITINIB
     Indication: Renal cell carcinoma
     Dosage: 5 MG, 2X/DAY
     Route: 048
     Dates: start: 201905
  2. INLYTA [Suspect]
     Active Substance: AXITINIB
     Dosage: 3 MG, 2X/DAY (TAKE 1 TAB ORALLY EVERY 12 HRS)
     Route: 048
  3. INLYTA [Suspect]
     Active Substance: AXITINIB
     Dosage: 1 MG (30 DAY SUPPLY)
  4. FISH OIL [Concomitant]
     Active Substance: FISH OIL
     Dosage: UNK
  5. AZELASTINE HYDROCHLORIDE [Concomitant]
     Active Substance: AZELASTINE HYDROCHLORIDE
     Dosage: UNK
  6. BAVENCIO [Concomitant]
     Active Substance: AVELUMAB
     Dosage: UNK
  7. ZYRTEC [Concomitant]
     Active Substance: CETIRIZINE HYDROCHLORIDE
     Dosage: UNK
  8. NEXIUM [Concomitant]
     Active Substance: ESOMEPRAZOLE MAGNESIUM
     Dosage: UNK
  9. SINGULAIR [Concomitant]
     Active Substance: MONTELUKAST SODIUM
     Dosage: UNK
  10. LISINOPRIL [Concomitant]
     Active Substance: LISINOPRIL
     Dosage: UNK
  11. FLONASE ALLERGY RELIEF [Concomitant]
     Active Substance: FLUTICASONE PROPIONATE
     Dosage: UNK

REACTIONS (5)
  - Rib fracture [Unknown]
  - Fracture [Unknown]
  - Road traffic accident [Unknown]
  - Diarrhoea [Unknown]
  - Product dose omission issue [Unknown]
